FAERS Safety Report 4596589-2 (Version None)
Quarter: 2005Q1

REPORT INFORMATION
  Report Type: 
  Country: None (occurrence: None)
  Receive Date: 20050302
  Receipt Date: 20050218
  Transmission Date: 20050727
  Serious: Yes (Life-Threatening)
  Sender: FDA-Public Use
  Company Number: CA-NOVOPROD-242457

PATIENT

DRUGS (1)
  1. NIASTASE [Suspect]
     Indication: AORTIC ANEURYSM RUPTURE
     Dosage: 7.2 MG, 2 DOSES

REACTIONS (2)
  - CEREBRAL HAEMORRHAGE [None]
  - NEUTROPENIA [None]
